FAERS Safety Report 5118761-5 (Version None)
Quarter: 2006Q4

REPORT INFORMATION
  Report Type: 
  Country: None (occurrence: None)
  Receive Date: 20061002
  Receipt Date: 20060920
  Transmission Date: 20070319
  Serious: Yes (Other)
  Sender: FDA-Public Use
  Company Number: PHEH2006US12013

PATIENT
  Age: 63 Year
  Sex: Male

DRUGS (4)
  1. EXJADE [Suspect]
     Indication: BLOOD IRON INCREASED
     Dosage: 2000 MG, QD
     Route: 048
     Dates: start: 20060917
  2. VASOTEC [Concomitant]
  3. TRICOR [Concomitant]
  4. MULTI-VITAMINS [Concomitant]

REACTIONS (2)
  - FATIGUE [None]
  - VISION BLURRED [None]
